FAERS Safety Report 16747812 (Version 1)
Quarter: 2019Q3

REPORT INFORMATION
  Report Type: Spontaneous
  Country: ES (occurrence: ES)
  Receive Date: 20190827
  Receipt Date: 20190827
  Transmission Date: 20191005
  Serious: Yes (Hospitalization)
  Sender: FDA-Public Use
  Company Number: ES-MYLANLABS-2019M1079656

PATIENT
  Age: 76 Year
  Sex: Male

DRUGS (4)
  1. RELVAR ELLIPTA                     /08236201/ [Concomitant]
     Active Substance: FLUTICASONE FUROATE\VILANTEROL TRIFENATATE
     Indication: BRONCHITIS CHRONIC
     Dosage: 1 DOSAGE FORM, QD
     Route: 055
     Dates: start: 20180717
  2. BRETARIS GENUAIR [Concomitant]
     Active Substance: ACLIDINIUM BROMIDE
     Indication: BRONCHITIS CHRONIC
     Dosage: 1 DOSAGE FORM, BID (1 PUFF / C 12H)
     Route: 055
     Dates: start: 20180716
  3. INDAPAMIDE. [Suspect]
     Active Substance: INDAPAMIDE
     Indication: HYPERTENSION
     Dosage: 1.5 MILLIGRAM, QD
     Route: 048
     Dates: start: 20181110, end: 20181128
  4. MIRABEGRON [Suspect]
     Active Substance: MIRABEGRON
     Indication: DYSURIA
     Dosage: 50 MILLIGRAM, QD
     Route: 048
     Dates: start: 20180718, end: 20181128

REACTIONS (2)
  - Confusional state [Recovered/Resolved]
  - Hyponatraemia [Recovered/Resolved]

NARRATIVE: CASE EVENT DATE: 20181116
